FAERS Safety Report 4519457-0 (Version None)
Quarter: 2004Q4

REPORT INFORMATION
  Report Type: 
  Country: None (occurrence: None)
  Receive Date: 20041101
  Receipt Date: 20040408
  Transmission Date: 20050328
  Serious: Yes (Other)
  Sender: FDA-Public Use
  Company Number: KDL072226

PATIENT
  Age: 61 Year
  Sex: Female

DRUGS (14)
  1. PROCRIT [Suspect]
     Indication: DIALYSIS
     Dosage: 10000 IU, 1 IN 1 WEEKS
     Route: 015
     Dates: start: 19990101
  2. SEVELAMER HCL [Concomitant]
  3. QUININE SULFATE [Concomitant]
  4. OMEPRAZOLE [Concomitant]
  5. LEVOTHYROXINE SODIUM [Concomitant]
  6. METOPROLOL SUCCINATE [Concomitant]
  7. GLIPIZIDE [Concomitant]
  8. ESCITALOPRAM [Concomitant]
  9. THEOPHYLLINE [Concomitant]
  10. METOCLOPRAMIDE [Concomitant]
  11. ACARBOSE [Concomitant]
  12. OSTEOBIFLEX [Concomitant]
  13. MULTIVITAMIN [Concomitant]
  14. FOLIC ACID [Concomitant]

REACTIONS (2)
  - MYOCARDIAL INFARCTION [None]
  - THERAPEUTIC RESPONSE DECREASED [None]
